FAERS Safety Report 6110383-2 (Version None)
Quarter: 2009Q1

REPORT INFORMATION
  Report Type: 
  Country: None (occurrence: None)
  Receive Date: 20090310
  Receipt Date: 20090226
  Transmission Date: 20090719
  Serious: Yes (Life-Threatening, Hospitalization)
  Sender: FDA-Public Use
  Company Number: JP-SANOFI-SYNTHELABO-A01200901378

PATIENT
  Sex: Male
  Weight: 65.8 kg

DRUGS (12)
  1. HUSCODE [Concomitant]
     Indication: COUGH
     Route: 048
     Dates: start: 20081210, end: 20081222
  2. FLOMOX [Concomitant]
     Indication: COUGH
     Route: 048
     Dates: start: 20081210, end: 20081217
  3. COUGHNOL [Concomitant]
     Indication: COUGH
     Route: 048
     Dates: start: 20070828, end: 20081222
  4. MAGMITT [Concomitant]
     Indication: CONSTIPATION
     Route: 048
     Dates: start: 20070828, end: 20081222
  5. TERNELIN [Concomitant]
     Indication: PAIN IN EXTREMITY
     Route: 048
     Dates: start: 20081016, end: 20081222
  6. DORAL [Concomitant]
     Indication: INSOMNIA
     Route: 048
     Dates: start: 20080918, end: 20081222
  7. BROTIZOLAM [Concomitant]
     Indication: INSOMNIA
     Route: 048
     Dates: start: 20080918, end: 20081222
  8. PURSENNID [Concomitant]
     Indication: CONSTIPATION
     Route: 048
     Dates: start: 20070814
  9. TAKEPRON [Concomitant]
     Indication: GASTRIC ULCER HELICOBACTER
     Route: 048
     Dates: start: 20080723, end: 20081224
  10. DIART [Concomitant]
     Indication: OEDEMA PERIPHERAL
     Dosage: 1 UNIT
     Route: 048
     Dates: start: 20081210, end: 20081222
  11. PLAVIX [Suspect]
     Indication: PROPHYLAXIS
     Route: 048
     Dates: start: 20080813, end: 20081224
  12. PLAVIX [Suspect]
     Indication: CEREBRAL INFARCTION
     Route: 048
     Dates: start: 20080813, end: 20081224

REACTIONS (5)
  - ACUTE PRERENAL FAILURE [None]
  - BLOOD CREATININE INCREASED [None]
  - DEHYDRATION [None]
  - HYPEREOSINOPHILIC SYNDROME [None]
  - RASH SCARLATINIFORM [None]
